FAERS Safety Report 14661609 (Version 8)
Quarter: 2018Q3

REPORT INFORMATION
  Report Type: Spontaneous
  Country: ES (occurrence: ES)
  Receive Date: 20180320
  Receipt Date: 20180813
  Transmission Date: 20181010
  Serious: Yes (Death, Hospitalization)
  Sender: FDA-Public Use
  Company Number: ES-PFIZER INC-2018115141

PATIENT
  Age: 72 Year
  Sex: Female

DRUGS (14)
  1. BRINTELLIX [Suspect]
     Active Substance: VORTIOXETINE HYDROBROMIDE
     Dosage: UNK
     Route: 048
  2. LUDIOMIL [Suspect]
     Active Substance: MAPROTILINE HYDROCHLORIDE
     Dosage: 37.5 MG, UNK
     Route: 048
  3. LUDIOMIL [Suspect]
     Active Substance: MAPROTILINE HYDROCHLORIDE
     Dosage: 75 MG, UNK (1/2?0?1/2)
     Route: 048
  4. BRINTELLIX [Suspect]
     Active Substance: VORTIOXETINE HYDROBROMIDE
     Indication: DEPRESSION
     Dosage: 5 MG, 1 VEZ AL DIA | DOSIS UNIDAD FRECUENCIA: 5 MG?MILIGRAMOS | DOSIS POR TOMA: 5 MG?MILIGRAMOS...
     Route: 048
     Dates: start: 20160310, end: 20160402
  5. ALPRAZOLAM. [Suspect]
     Active Substance: ALPRAZOLAM
     Dosage: 1/2?1/2?1 | DOSIS UNIDAD FRECUENCIA: 1 MG?MILIGRAMOS | UNIDAD DE FRECUENCIA: 1 DIA
     Route: 048
     Dates: start: 201404
  6. LUDIOMIL [Suspect]
     Active Substance: MAPROTILINE HYDROCHLORIDE
     Dosage: 18.75 MG, Q12H
     Route: 048
  7. FLUOXETINE [Suspect]
     Active Substance: FLUOXETINE HYDROCHLORIDE
     Indication: DEPRESSION
     Dosage: UNK
  8. AMITRIPTYLINE [Suspect]
     Active Substance: AMITRIPTYLINE
     Indication: DEPRESSION
     Dosage: UNK
  9. LUDIOMIL [Suspect]
     Active Substance: MAPROTILINE HYDROCHLORIDE
     Indication: DEPRESSION
     Dosage: 75 MG, UNK (1/2?0?1/2)
     Route: 048
     Dates: start: 201404, end: 201404
  10. LUDIOMIL [Suspect]
     Active Substance: MAPROTILINE HYDROCHLORIDE
     Dosage: UNK
     Route: 048
  11. BRINTELLIX [Suspect]
     Active Substance: VORTIOXETINE HYDROBROMIDE
     Dosage: 10 MG, QD
     Route: 048
  12. MIRTAZAPINE. [Suspect]
     Active Substance: MIRTAZAPINE
     Indication: DEPRESSION
     Dosage: UNK
  13. ASENAPINE [Suspect]
     Active Substance: ASENAPINE
     Indication: DEPRESSION
     Dosage: UNK
  14. LUDIOMIL [Suspect]
     Active Substance: MAPROTILINE HYDROCHLORIDE
     Dosage: (1/2?0?1/2) | DOSIS UNIDAD FRECUENCIA: 37.5 MG?MILIGRAMOS | DOSIS POR TOMA: 18.75 MG?MILIGRAMOS...
     Route: 048

REACTIONS (9)
  - Cardiac arrest [Fatal]
  - Aspiration [Fatal]
  - Polydipsia [Fatal]
  - Cerebrovascular accident [Fatal]
  - Embolic stroke [Fatal]
  - Depressed level of consciousness [Fatal]
  - Seizure [Fatal]
  - Respiration abnormal [Fatal]
  - Hyponatraemia [Fatal]

NARRATIVE: CASE EVENT DATE: 201604
